FAERS Safety Report 4420930-4 (Version None)
Quarter: 2004Q3

REPORT INFORMATION
  Report Type: 
  Country: None (occurrence: None)
  Receive Date: 20040809
  Receipt Date: 20040728
  Transmission Date: 20050211
  Serious: Yes (Other)
  Sender: FDA-Public Use
  Company Number: US-JNJFOC-20040800280

PATIENT
  Sex: Male
  Weight: 90.72 kg

DRUGS (6)
  1. REMICADE [Suspect]
     Route: 042
  2. REMICADE [Suspect]
     Indication: RHEUMATOID ARTHRITIS
     Route: 042
  3. LIPITOR [Concomitant]
  4. BLOOD PRESSURE MEDICATION [Concomitant]
  5. SYNTHROID [Concomitant]
  6. LANTUS [Concomitant]

REACTIONS (4)
  - DYSPHAGIA [None]
  - GOITRE [None]
  - HOARSENESS [None]
  - THYROID NEOPLASM [None]
